FAERS Safety Report 25277341 (Version 1)
Quarter: 2025Q2

REPORT INFORMATION
  Report Type: Spontaneous
  Country: US (occurrence: None)
  Receive Date: 20250506
  Receipt Date: 20250506
  Transmission Date: 20250717
  Serious: Yes (Hospitalization)
  Sender: FDA-CTU
  Company Number: None

PATIENT
  Sex: Male

DRUGS (1)
  1. CAPECITABINE [Suspect]
     Active Substance: CAPECITABINE
     Indication: Pancreatic carcinoma
     Dosage: TAKE 2 TABLETS BY MOUTH TWICE DAILY WITHIN 30 INUTES OF A MEAL ON DAYS 1-14 OF EACH 28 DAY CYCLE
     Route: 048

REACTIONS (1)
  - Hospitalisation [None]
